FAERS Safety Report 16376053 (Version 1)
Quarter: 2019Q2

REPORT INFORMATION
  Report Type: Spontaneous
  Country: GB (occurrence: GB)
  Receive Date: 20190531
  Receipt Date: 20190531
  Transmission Date: 20190711
  Serious: Yes (Hospitalization)
  Sender: FDA-Public Use
  Company Number: GB-ACCORD-129605

PATIENT
  Age: 80 Year
  Sex: Female

DRUGS (8)
  1. OMEPRAZOLE. [Suspect]
     Active Substance: OMEPRAZOLE
     Indication: PRODUCT USED FOR UNKNOWN INDICATION
     Route: 048
     Dates: start: 20190116, end: 20190203
  2. PARACETAMOL [Concomitant]
     Active Substance: ACETAMINOPHEN
     Dosage: 1-2 FOUR TIMES DAILY
     Route: 048
  3. MACROGOL/MACROGOL STEARATE [Concomitant]
     Route: 048
  4. RAMIPRIL. [Suspect]
     Active Substance: RAMIPRIL
     Indication: PRODUCT USED FOR UNKNOWN INDICATION
     Route: 048
     Dates: start: 20181228, end: 20190208
  5. ESTRIOL [Concomitant]
     Active Substance: ESTRIOL
     Dosage: CREAM WITH APPLICATOR
     Route: 061
  6. RANITIDINE. [Concomitant]
     Active Substance: RANITIDINE
     Dates: start: 20190203
  7. WHITE SOFT PARAFFIN [Concomitant]
     Active Substance: PARAFFIN
     Route: 061
  8. PARAFFIN/LIQUID [Concomitant]
     Route: 061

REACTIONS (2)
  - Confusional state [Unknown]
  - Hyponatraemia [Recovered/Resolved]

NARRATIVE: CASE EVENT DATE: 20190207
